FAERS Safety Report 18464481 (Version 2)
Quarter: 2020Q4

REPORT INFORMATION
  Report Type: Spontaneous
  Country: US (occurrence: US)
  Receive Date: 20201104
  Receipt Date: 20201110
  Transmission Date: 20210114
  Serious: No
  Sender: FDA-Public Use
  Company Number: US-GLAXOSMITHKLINE-US2013AMR001165

PATIENT
  Sex: Female

DRUGS (3)
  1. BENLYSTA [Suspect]
     Active Substance: BELIMUMAB
     Indication: SYSTEMIC LUPUS ERYTHEMATOSUS
     Dosage: UNK
  2. PRENISONE [Suspect]
     Active Substance: PREDNISONE
     Indication: PRODUCT USED FOR UNKNOWN INDICATION
     Dosage: UNK
  3. METHOTREXATE. [Suspect]
     Active Substance: METHOTREXATE
     Indication: PRODUCT USED FOR UNKNOWN INDICATION
     Dosage: UNK

REACTIONS (11)
  - Infusion site inflammation [Unknown]
  - Infusion site pain [Unknown]
  - Infusion site bruising [Unknown]
  - Fatigue [Unknown]
  - Alopecia [Unknown]
  - Abdominal pain upper [Unknown]
  - Dizziness [Unknown]
  - Weight increased [Unknown]
  - Headache [Unknown]
  - Infusion site erythema [Unknown]
  - Erythema [Unknown]
